FAERS Safety Report 8537706-9 (Version None)
Quarter: 2012Q3

REPORT INFORMATION
  Report Type: 
  Country: None (occurrence: None)
  Receive Date: 20120725
  Receipt Date: 20120723
  Transmission Date: 20120928
  Serious: Yes (Life-Threatening, Hospitalization, Other)
  Sender: FDA-Public Use
  Company Number: PHHY2012FR063475

PATIENT
  Sex: Male

DRUGS (13)
  1. CELLCEPT [Concomitant]
     Dosage: 500 MG, BID
  2. LASIX [Concomitant]
     Dosage: 40 MG, UNK
     Route: 048
     Dates: start: 20111001, end: 20120601
  3. MAG 2 [Concomitant]
     Dosage: 1 DF, TID
     Route: 048
     Dates: end: 20120629
  4. COUMADIN [Concomitant]
     Dosage: 2 MG, UNK
     Route: 048
     Dates: start: 20111001, end: 20120629
  5. CERTICAN [Suspect]
     Indication: RENAL TRANSPLANT
     Dosage: 1 DF, BID
     Route: 048
     Dates: start: 20120101, end: 20120629
  6. MYFORTIC [Suspect]
     Dosage: 1 DF, BID
     Route: 048
     Dates: start: 20111001, end: 20120630
  7. PROGRAF [Concomitant]
     Dosage: 4 MG, BID
  8. BISOPROLOL FUMARATE [Concomitant]
     Dosage: 10 MG, UNK
     Route: 048
     Dates: end: 20120601
  9. CORDARONE [Suspect]
     Dosage: 1 DF, QD, FOR 5 DAYS WEEKLY
     Route: 048
     Dates: start: 20120518, end: 20120630
  10. PREDNISONE TAB [Concomitant]
     Dosage: 10 MG, UNK
     Route: 048
     Dates: start: 20110101, end: 20120601
  11. CRESTOR [Concomitant]
     Dosage: 5 MG, UNK
     Route: 048
     Dates: start: 20111001, end: 20120601
  12. ASPIRIN [Concomitant]
     Dosage: 75 MG, UNK
     Route: 048
     Dates: start: 20111001, end: 20120601
  13. RAMIPRIL [Concomitant]
     Dosage: 5 MG, QD
     Route: 048
     Dates: start: 20120315, end: 20120601

REACTIONS (16)
  - LUNG DISORDER [None]
  - ACUTE PULMONARY OEDEMA [None]
  - BLOOD PRESSURE SYSTOLIC INCREASED [None]
  - COUGH [None]
  - RENAL IMPAIRMENT [None]
  - KIDNEY TRANSPLANT REJECTION [None]
  - CREPITATIONS [None]
  - RENAL FAILURE ACUTE [None]
  - LIVEDO RETICULARIS [None]
  - FLUID OVERLOAD [None]
  - PNEUMOCYSTIS JIROVECI INFECTION [None]
  - INTERSTITIAL LUNG DISEASE [None]
  - RESPIRATORY DISORDER [None]
  - CONDITION AGGRAVATED [None]
  - ACUTE RESPIRATORY DISTRESS SYNDROME [None]
  - PYREXIA [None]
